FAERS Safety Report 25919675 (Version 1)
Quarter: 2025Q4

REPORT INFORMATION
  Report Type: Spontaneous
  Country: US (occurrence: US)
  Receive Date: 20251014
  Receipt Date: 20251014
  Transmission Date: 20260117
  Serious: Yes (Other)
  Sender: ANI
  Company Number: US-ANIPHARMA-2025-US-045750

PATIENT
  Age: 46 Year
  Sex: Female
  Weight: 81.19 kg

DRUGS (31)
  1. CORTICOTROPIN [Suspect]
     Active Substance: CORTICOTROPIN
     Indication: Rheumatoid arthritis
     Dosage: 80 UNITS TWICE WEEKLY
     Route: 058
     Dates: start: 20241216
  2. METOPROLOL TARTRATE [Concomitant]
     Active Substance: METOPROLOL TARTRATE
  3. DOSOKAP [Concomitant]
  4. SINGUL [Concomitant]
  5. FOLIC ACID [Concomitant]
     Active Substance: FOLIC ACID
  6. BIOHM PREBIOTIC SUPPLEMEN [Concomitant]
  7. CURCUMIN 95 [Concomitant]
  8. ZYRTEC [Concomitant]
     Active Substance: CETIRIZINE HYDROCHLORIDE
  9. FLONASE [Concomitant]
     Active Substance: FLUTICASONE PROPIONATE
  10. COLESTID [Concomitant]
     Active Substance: COLESTIPOL HYDROCHLORIDE
  11. DEMADEX [Concomitant]
     Active Substance: TORSEMIDE
  12. CIMZIA [Concomitant]
     Active Substance: CERTOLIZUMAB PEGOL
  13. ALBUTEROL SULFATE [Concomitant]
     Active Substance: ALBUTEROL SULFATE
  14. CYMBALTA [Concomitant]
     Active Substance: DULOXETINE HYDROCHLORIDE
  15. ONDANSETRON HYDROCHLORIDE [Concomitant]
     Active Substance: ONDANSETRON HYDROCHLORIDE
  16. IMODIUM A-D [Concomitant]
     Active Substance: LOPERAMIDE HYDROCHLORIDE
  17. KLONOPIN [Concomitant]
     Active Substance: CLONAZEPAM
  18. METHADONE HYDROCHLORIDE [Concomitant]
     Active Substance: METHADONE HYDROCHLORIDE
  19. DEPO-PROVERA CONTRAC [Concomitant]
  20. CYANOCOBALAMIN [Concomitant]
     Active Substance: CYANOCOBALAMIN
  21. BENTYL [Concomitant]
     Active Substance: DICYCLOMINE HYDROCHLORIDE
  22. LYRICA [Concomitant]
     Active Substance: PREGABALIN
  23. ALDACTONE [Concomitant]
     Active Substance: SPIRONOLACTONE
  24. PAXIL [Concomitant]
     Active Substance: PAROXETINE HYDROCHLORIDE
  25. PRIMIDONE [Concomitant]
     Active Substance: PRIMIDONE
  26. ADVAIR HFA [Concomitant]
     Active Substance: FLUTICASONE PROPIONATE\SALMETEROL XINAFOATE
  27. SKYRIZI [Concomitant]
     Active Substance: RISANKIZUMAB-RZAA
  28. HYDROCODONE BITARTRATE/AC [Concomitant]
  29. NEXIUM [Concomitant]
     Active Substance: ESOMEPRAZOLE MAGNESIUM
  30. DIPHENHYDRAMINE HYDROCHLORIDE [Concomitant]
     Active Substance: DIPHENHYDRAMINE HYDROCHLORIDE
  31. TYLENOL EXTRA STR [Concomitant]

REACTIONS (1)
  - Sjogren^s syndrome [Unknown]

NARRATIVE: CASE EVENT DATE: 20250807
